APPROVED DRUG PRODUCT: METHYLPHENIDATE HYDROCHLORIDE
Active Ingredient: METHYLPHENIDATE HYDROCHLORIDE
Strength: 10MG
Dosage Form/Route: TABLET, EXTENDED RELEASE;ORAL
Application: A207488 | Product #001 | TE Code: AB
Applicant: ABHAI LLC
Approved: Jun 9, 2015 | RLD: No | RS: No | Type: RX